FAERS Safety Report 7207578-3 (Version None)
Quarter: 2011Q1

REPORT INFORMATION
  Report Type: 
  Country: None (occurrence: None)
  Receive Date: 20110103
  Receipt Date: 20101221
  Transmission Date: 20110831
  Serious: Yes (Other)
  Sender: FDA-Public Use
  Company Number: US-PFIZER INC-2010177399

PATIENT
  Age: 59 Year
  Sex: Female

DRUGS (3)
  1. CARBOPLATIN [Suspect]
     Indication: ENDOMETRIAL CANCER
     Dosage: AUC=5 OVER 30 MINUTES ON DAY 1OF A 21 DAY CYCLE, X 6 CYCLES
     Route: 042
     Dates: end: 20101104
  2. PACLITAXEL [Suspect]
     Indication: ENDOMETRIAL CANCER
     Dosage: 135 MG/M2, OVER 3 HOURS ON DAY 1 OF A 21 DAY CYCLE, X 6 CYCLES
     Route: 042
     Dates: end: 20101104
  3. TORISEL [Suspect]
     Indication: ENDOMETRIAL CANCER
     Dosage: 20 MG ON DAY 1 AND 8 OF A 21 DAY CYCLE X 6 CYCLES
     Route: 042
     Dates: start: 20101013, end: 20101111

REACTIONS (1)
  - HYPERURICAEMIA [None]
